FAERS Safety Report 4683955-X (Version None)
Quarter: 2005Q2

REPORT INFORMATION
  Report Type: 
  Country: None (occurrence: None)
  Receive Date: 20050607
  Receipt Date: 20050406
  Transmission Date: 20051028
  Serious: Yes (Hospitalization, Other)
  Sender: FDA-Public Use
  Company Number: US-BRISTOL-MYERS SQUIBB COMPANY-12924379

PATIENT
  Age: 48 Year
  Sex: Male
  Weight: 80 kg

DRUGS (4)
  1. ZERIT [Suspect]
     Dates: end: 20050406
  2. FAMVIR [Concomitant]
     Dates: end: 20050406
  3. KALETRA [Concomitant]
     Dates: end: 20050406
  4. EPIVIR [Concomitant]
     Dates: end: 20050406

REACTIONS (3)
  - BLINDNESS [None]
  - BLINDNESS UNILATERAL [None]
  - SYPHILIS [None]
